FAERS Safety Report 9293375 (Version 2)
Quarter: 2013Q2

REPORT INFORMATION
  Report Type: Spontaneous
  Country: CZ (occurrence: CZ)
  Receive Date: 20130517
  Receipt Date: 20130520
  Transmission Date: 20140414
  Serious: Yes (Other)
  Sender: FDA-Public Use
  Company Number: CZ-ROCHE-1225301

PATIENT
  Age: 72 Year
  Sex: Female

DRUGS (1)
  1. ZELBORAF [Suspect]
     Indication: MALIGNANT MELANOMA
     Route: 048
     Dates: start: 20130430, end: 20130509

REACTIONS (4)
  - Rash [Recovering/Resolving]
  - C-reactive protein increased [Unknown]
  - Dry skin [Unknown]
  - Skin exfoliation [Unknown]
